FAERS Safety Report 9308332 (Version 1)
Quarter: 2013Q2

REPORT INFORMATION
  Report Type: Report from Study
  Country: BE (occurrence: BE)
  Receive Date: 20130524
  Receipt Date: 20130524
  Transmission Date: 20140414
  Serious: Yes (Life-Threatening, Hospitalization)
  Sender: FDA-Public Use
  Company Number: BE-GLAXOSMITHKLINE-B0880810A

PATIENT
  Age: 63 Year
  Sex: 0
  Weight: 57.5 kg

DRUGS (3)
  1. PAZOPANIB [Suspect]
     Indication: NEOPLASM MALIGNANT
     Dosage: 800MG PER DAY
     Route: 048
     Dates: start: 20130222
  2. TAXOL [Suspect]
     Indication: NEOPLASM MALIGNANT
     Dosage: 49MG WEEKLY
     Route: 042
     Dates: start: 20130219
  3. CARBOPLATIN [Suspect]
     Indication: NEOPLASM MALIGNANT
     Dosage: 216MG WEEKLY
     Route: 042
     Dates: start: 20130219

REACTIONS (1)
  - Sepsis [Recovered/Resolved]
